FAERS Safety Report 12087914 (Version 1)
Quarter: 2016Q1

REPORT INFORMATION
  Report Type: Spontaneous
  Country: US (occurrence: US)
  Receive Date: 20160217
  Receipt Date: 20160217
  Transmission Date: 20160526
  Serious: No
  Sender: FDA-Public Use
  Company Number: US-ALLERGAN-1518506US

PATIENT
  Sex: Female

DRUGS (2)
  1. ANTIBIOTIC                         /00011701/ [Concomitant]
     Active Substance: UNSPECIFIED INGREDIENT
     Indication: EYE INFECTION
     Route: 047
  2. RESTASIS [Suspect]
     Active Substance: CYCLOSPORINE
     Indication: FOREIGN BODY SENSATION IN EYES
     Route: 047

REACTIONS (2)
  - Foreign body sensation in eyes [Unknown]
  - Off label use [Unknown]
